FAERS Safety Report 9076164 (Version 1)
Quarter: 2013Q1

REPORT INFORMATION
  Report Type: Report from Study
  Country: US (occurrence: US)
  Receive Date: 20130129
  Receipt Date: 20130129
  Transmission Date: 20140127
  Serious: Yes (Hospitalization, Other)
  Sender: FDA-Public Use
  Company Number: US-ABBOTT-12P-163-0928282-00

PATIENT
  Age: 64 None
  Sex: Female

DRUGS (8)
  1. HUMIRA 40 MG/0.8 ML PEN [Suspect]
     Indication: PSORIASIS
     Route: 058
     Dates: start: 20111123
  2. ASPIRIN [Concomitant]
     Indication: PRODUCT USED FOR UNKNOWN INDICATION
  3. LIPITOR [Concomitant]
     Indication: PRODUCT USED FOR UNKNOWN INDICATION
  4. BENICAR [Concomitant]
     Indication: HYPERTENSION
  5. METFORMIN [Concomitant]
     Indication: DIABETES MELLITUS
  6. METOPROLOL [Concomitant]
     Indication: HYPERTENSION
  7. HUMULIN [Concomitant]
     Indication: DIABETES MELLITUS
  8. VENNA [Concomitant]
     Indication: SUPPLEMENTATION THERAPY

REACTIONS (2)
  - Thyroid cancer [Unknown]
  - Psoriasis [Not Recovered/Not Resolved]
